FAERS Safety Report 7631461-2 (Version None)
Quarter: 2011Q3

REPORT INFORMATION
  Report Type: 
  Country: None (occurrence: None)
  Receive Date: 20110725
  Receipt Date: 20110715
  Transmission Date: 20111222
  Serious: Yes (Hospitalization, Other)
  Sender: FDA-Public Use
  Company Number: JP-SANOFI-AVENTIS-2010SA069175

PATIENT
  Age: 75 Year
  Sex: Female
  Weight: 45 kg

DRUGS (6)
  1. CANDESARTAN CILEXETIL [Concomitant]
     Indication: HYPERTENSION
     Route: 048
     Dates: start: 20100730
  2. OXALIPLATIN [Suspect]
     Route: 041
     Dates: start: 20101008, end: 20110224
  3. CAPECITABINE [Suspect]
     Indication: COLON CANCER
     Route: 048
     Dates: start: 20101008, end: 20110623
  4. OXALIPLATIN [Suspect]
     Indication: COLON CANCER
     Route: 041
     Dates: start: 20100730, end: 20100909
  5. CAPECITABINE [Suspect]
     Route: 048
     Dates: start: 20100730, end: 20100923
  6. BEVACIZUMAB [Suspect]
     Indication: COLON CANCER
     Route: 041

REACTIONS (2)
  - PLATELET COUNT DECREASED [None]
  - DISSEMINATED INTRAVASCULAR COAGULATION [None]
